FAERS Safety Report 5287621-1 (Version None)
Quarter: 2007Q1

REPORT INFORMATION
  Report Type: 
  Country: None (occurrence: None)
  Receive Date: 20070108
  Receipt Date: 20060110
  Transmission Date: 20070707
  Serious: Yes (Hospitalization)
  Sender: FDA-Public Use
  Company Number: WAES 0601USA01223

PATIENT
  Sex: Male

DRUGS (1)
  1. PEPCID [Suspect]
     Indication: ANTACID THERAPY
     Dosage: IV
     Route: 042

REACTIONS (1)
  - HEPATIC ENZYME INCREASED [None]
